FAERS Safety Report 13298345 (Version 1)
Quarter: 2017Q1

REPORT INFORMATION
  Report Type: Spontaneous
  Country: TW (occurrence: TW)
  Receive Date: 20170306
  Receipt Date: 20170306
  Transmission Date: 20170428
  Serious: Yes (Other)
  Sender: FDA-Public Use
  Company Number: TW-BAYER-2017-036356

PATIENT
  Age: 77 Year
  Sex: Female

DRUGS (1)
  1. NEXAVAR [Suspect]
     Active Substance: SORAFENIB
     Indication: THYROID CANCER
     Dosage: UNK
     Dates: start: 20161203

REACTIONS (5)
  - Thyroid calcification [None]
  - Tracheal stenosis [None]
  - Lymphadenectomy [None]
  - Sinusitis [None]
  - Thyroid cancer [None]
